FAERS Safety Report 10201593 (Version 1)
Quarter: 2014Q2

REPORT INFORMATION
  Report Type: Spontaneous
  Country: US (occurrence: US)
  Receive Date: 20140528
  Receipt Date: 20140528
  Transmission Date: 20141212
  Serious: No
  Sender: FDA-Public Use
  Company Number: US-JNJFOC-20140510058

PATIENT
  Age: 71 Year
  Sex: Female
  Weight: 47.17 kg

DRUGS (6)
  1. SANDOZ FENTANYL TRANSDERMAL SYSTEM [Suspect]
     Indication: BACK PAIN
     Route: 062
  2. FENTANYL TRANSDERMAL SYSTEM [Suspect]
     Indication: BACK PAIN
     Route: 062
  3. TRAMADOL [Concomitant]
     Indication: PAIN
     Route: 048
     Dates: start: 1992
  4. EXTRA STRENGTH TYLENOL [Concomitant]
     Indication: PAIN
     Route: 048
     Dates: start: 1992
  5. LOVASTATIN [Concomitant]
     Indication: BLOOD CHOLESTEROL
     Route: 048
  6. LEVOTHYROXINE [Concomitant]
     Indication: THYROIDECTOMY
     Route: 048

REACTIONS (7)
  - Drug administered at inappropriate site [Not Recovered/Not Resolved]
  - Drug ineffective [Not Recovered/Not Resolved]
  - Product quality issue [Not Recovered/Not Resolved]
  - Drug administered at inappropriate site [Not Recovered/Not Resolved]
  - Abnormal loss of weight [Not Recovered/Not Resolved]
  - Thermal burn [Not Recovered/Not Resolved]
  - Poor quality drug administered [Not Recovered/Not Resolved]
